FAERS Safety Report 14610765 (Version 1)
Quarter: 2018Q1

REPORT INFORMATION
  Report Type: Spontaneous
  Country: KR (occurrence: KR)
  Receive Date: 20180308
  Receipt Date: 20180308
  Transmission Date: 20180509
  Serious: Yes (Other)
  Sender: FDA-Public Use
  Company Number: KR-CONCORDIA PHARMACEUTICALS INC.-GSH201803-000895

PATIENT
  Age: 73 Year
  Sex: Male

DRUGS (5)
  1. RITUXIMAB. [Suspect]
     Active Substance: RITUXIMAB
  2. PREDNISOLONE. [Suspect]
     Active Substance: PREDNISOLONE
  3. CYCLOPHOSPHAMIDE. [Suspect]
     Active Substance: CYCLOPHOSPHAMIDE
  4. DOXORUBICIN [Suspect]
     Active Substance: DOXORUBICIN
  5. VINCRISTINE [Suspect]
     Active Substance: VINCRISTINE

REACTIONS (1)
  - Disease progression [Unknown]
